FAERS Safety Report 4406232-0 (Version None)
Quarter: 2004Q3

REPORT INFORMATION
  Report Type: 
  Country: None (occurrence: None)
  Receive Date: 20040723
  Receipt Date: 20010705
  Transmission Date: 20050211
  Serious: Yes (Other)
  Sender: FDA-Public Use
  Company Number: US-GLAXOSMITHKLINE-A0350366A

PATIENT
  Age: 74 Year
  Sex: Female
  Weight: 104.31 kg

DRUGS (4)
  1. AVANDIA [Suspect]
     Dosage: 4MG TWICE PER DAY
     Route: 048
     Dates: start: 20010101, end: 20010701
  2. GLUCOTROL [Concomitant]
  3. CAPTOPRIL [Concomitant]
  4. ZOCOR [Concomitant]

REACTIONS (3)
  - BLOOD GLUCOSE INCREASED [None]
  - DYSPNOEA [None]
  - WEIGHT INCREASED [None]
